FAERS Safety Report 16040280 (Version 2)
Quarter: 2019Q1

REPORT INFORMATION
  Report Type: Report from Study
  Country: US (occurrence: US)
  Receive Date: 20190306
  Receipt Date: 20190322
  Transmission Date: 20190418
  Serious: Yes (Other)
  Sender: FDA-Public Use
  Company Number: US-ROCHE-2277083

PATIENT

DRUGS (2)
  1. ATEZOLIZUMAB. [Suspect]
     Active Substance: ATEZOLIZUMAB
     Indication: LEUKAEMIA
     Dosage: DAYS 8 AND 22
     Route: 042
  2. GUADECITABINE [Suspect]
     Active Substance: GUADECITABINE
     Indication: LEUKAEMIA
     Dosage: DOSE LEVEL 1?DAYS 1-5
     Route: 065

REACTIONS (3)
  - Thrombocytopenia [Unknown]
  - Neutropenia [Unknown]
  - Leukopenia [Unknown]
